FAERS Safety Report 23682671 (Version 1)
Quarter: 2024Q1

REPORT INFORMATION
  Report Type: Spontaneous
  Country: US (occurrence: None)
  Receive Date: 20240327
  Receipt Date: 20240327
  Transmission Date: 20240409
  Serious: No
  Sender: FDA-Public Use
  Company Number: None

PATIENT
  Age: 26 Year
  Sex: 0
  Weight: 85.3 kg

DRUGS (2)
  1. CLOZAPINE [Suspect]
     Active Substance: CLOZAPINE
     Indication: Schizoaffective disorder
     Dosage: FREQUENCY : AT BEDTIME;?
     Route: 048
     Dates: start: 20231025, end: 20240311
  2. ABILIFY [Concomitant]
     Active Substance: ARIPIPRAZOLE
     Dates: start: 20230427

REACTIONS (3)
  - Electrocardiogram QT prolonged [None]
  - Electrocardiogram U wave present [None]
  - Therapy cessation [None]

NARRATIVE: CASE EVENT DATE: 20240311
